FAERS Safety Report 9181839 (Version 2)
Quarter: 2013Q2

REPORT INFORMATION
  Report Type: Spontaneous
  Country: CA (occurrence: CA)
  Receive Date: 20130322
  Receipt Date: 20130427
  Transmission Date: 20140414
  Serious: Yes (Hospitalization, Other)
  Sender: FDA-Public Use
  Company Number: CA-PFIZER INC-2013072111

PATIENT
  Age: 16 Year
  Sex: Female
  Weight: 92 kg

DRUGS (1)
  1. PRISTIQ [Suspect]
     Indication: DEPRESSION
     Dosage: 50 MG, 1X/DAY
     Dates: start: 20120711

REACTIONS (3)
  - Overdose [Recovered/Resolved]
  - Off label use [Not Recovered/Not Resolved]
  - Impulsive behaviour [Recovered/Resolved]
